FAERS Safety Report 6780052-4 (Version None)
Quarter: 2010Q2

REPORT INFORMATION
  Report Type: 
  Country: None (occurrence: None)
  Receive Date: 20100618
  Receipt Date: 20100607
  Transmission Date: 20101027
  Serious: Yes (Life-Threatening, Other)
  Sender: FDA-Public Use
  Company Number: US-PFIZER INC-2010071930

PATIENT
  Sex: Male
  Weight: 74 kg

DRUGS (2)
  1. CHANTIX [Suspect]
     Indication: SMOKING CESSATION THERAPY
     Dosage: 0.5 MG, 1X/DAY
     Route: 048
     Dates: start: 20100531, end: 20100601
  2. MULTI-VITAMINS [Concomitant]
     Dosage: UNK

REACTIONS (3)
  - NEGATIVE THOUGHTS [None]
  - SLEEP DISORDER [None]
  - SUICIDAL IDEATION [None]
